FAERS Safety Report 5161191-0 (Version None)
Quarter: 2006Q4

REPORT INFORMATION
  Report Type: 
  Country: None (occurrence: None)
  Receive Date: 20061130
  Receipt Date: 20060808
  Transmission Date: 20070319
  Serious: No
  Sender: FDA-Public Use
  Company Number: US-BRISTOL-MYERS SQUIBB COMPANY-13468855

PATIENT
  Age: 65 Year
  Sex: Female
  Weight: 88 kg

DRUGS (4)
  1. ERBITUX [Suspect]
     Indication: COLON CANCER
     Route: 042
     Dates: start: 20060808, end: 20060808
  2. IRINOTECAN HCL [Concomitant]
  3. BENADRYL [Concomitant]
     Indication: PREMEDICATION
     Route: 042
  4. PEPCID [Concomitant]
     Indication: PREMEDICATION
     Route: 042

REACTIONS (1)
  - EXTRAVASATION [None]
